FAERS Safety Report 10261921 (Version 2)
Quarter: 2015Q1

REPORT INFORMATION
  Report Type: Spontaneous
  Country: US (occurrence: US)
  Receive Date: 20140626
  Receipt Date: 20150210
  Transmission Date: 20150720
  Serious: Yes (Hospitalization, Other)
  Sender: FDA-Public Use
  Company Number: US-ACTAVIS-2014-13365

PATIENT
  Sex: Female

DRUGS (2)
  1. HYDROCHLOROTHIAZIDE. [Concomitant]
     Active Substance: HYDROCHLOROTHIAZIDE
     Indication: PRODUCT USED FOR UNKNOWN INDICATION
     Dosage: UNK, UNKNOWN
     Route: 065
     Dates: start: 2005
  2. LORAZEPAM (WATSON LABORATORIES) [Suspect]
     Active Substance: LORAZEPAM
     Indication: ANXIETY
     Dosage: 2 MG, TID
     Route: 065
     Dates: start: 2005

REACTIONS (11)
  - Diverticulum [Unknown]
  - Diverticulitis [Not Recovered/Not Resolved]
  - Unevaluable event [Not Recovered/Not Resolved]
  - Oedema [Unknown]
  - Secretion discharge [Not Recovered/Not Resolved]
  - Open angle glaucoma [Unknown]
  - Drug ineffective [Not Recovered/Not Resolved]
  - Electroencephalogram abnormal [Not Recovered/Not Resolved]
  - Fluid retention [Not Recovered/Not Resolved]
  - Constipation [Unknown]
  - Dry mouth [Unknown]

NARRATIVE: CASE EVENT DATE: 2007
